FAERS Safety Report 25851091 (Version 1)
Quarter: 2025Q3

REPORT INFORMATION
  Report Type: Report from Study
  Country: EU (occurrence: EU)
  Receive Date: 20250926
  Receipt Date: 20250926
  Transmission Date: 20251020
  Serious: Yes (Other)
  Sender: TEVA
  Company Number: EU-TEVA-VS-3374223

PATIENT
  Age: 77 Year
  Sex: Female

DRUGS (10)
  1. TERIPARATIDE [Suspect]
     Active Substance: TERIPARATIDE
     Indication: Osteoporosis
     Route: 065
     Dates: start: 20250313
  2. ATORVASTATIN [Concomitant]
     Active Substance: ATORVASTATIN
     Indication: Dyslipidaemia
     Dosage: START DATE: SOME TIME AGO; END DATE: CONTINUES
  3. CALCIUM\VITAMIN D [Concomitant]
     Active Substance: CALCIUM\VITAMIN D
     Indication: Osteoporosis
     Dosage: START DATE: SOME TIME AGO; END DATE: CONTINUES.
  4. CALCIFEDIOL [Concomitant]
     Active Substance: CALCIFEDIOL
     Indication: Osteoporosis
     Dosage: START DATE: SOME TIME AGO; END DATE: CONTINUES.
  5. BISOPROLOL [Concomitant]
     Active Substance: BISOPROLOL
     Indication: Arrhythmia
     Dosage: 1,25MG, START DATE: SOME TIME AGO; END DATE: CONTINUES.
  6. FLECAINIDE ACETATE [Concomitant]
     Active Substance: FLECAINIDE ACETATE
     Indication: Arrhythmia
     Dosage: 100, HALF EVERY 12 HOURS; START DATE: SOME TIME AGO; END DATE: CONTINUES.
  7. BILASTINE [Concomitant]
     Active Substance: BILASTINE
     Indication: Hypersensitivity
     Dosage: START DATE: SOME TIME AGO; END DATE: CONTINUES.
  8. CANDESARTAN [Concomitant]
     Active Substance: CANDESARTAN
     Indication: Hypertension
     Dosage: START DATE: SOME TIME AGO; END DATE: CONTINUES.
  9. EDOXABAN TOSYLATE [Concomitant]
     Active Substance: EDOXABAN TOSYLATE
     Indication: Cardiovascular disorder
     Dosage: START DATE: SOME TIME AGO; END DATE: CONTINUES.
  10. Daflon [Concomitant]
     Indication: Cardiovascular disorder

REACTIONS (3)
  - Back pain [Not Recovered/Not Resolved]
  - Balance disorder [Not Recovered/Not Resolved]
  - Blood pressure abnormal [Not Recovered/Not Resolved]

NARRATIVE: CASE EVENT DATE: 20250801
